FAERS Safety Report 16992803 (Version 1)
Quarter: 2019Q4

REPORT INFORMATION
  Report Type: Spontaneous
  Country: US (occurrence: US)
  Receive Date: 20191104
  Receipt Date: 20191104
  Transmission Date: 20200122
  Serious: Yes (Other)
  Sender: FDA-Public Use
  Company Number: None

PATIENT
  Age: 58 Year
  Sex: Female
  Weight: 67.5 kg

DRUGS (4)
  1. LEVOTHYROXINE. [Concomitant]
     Active Substance: LEVOTHYROXINE
  2. LINZESS [Concomitant]
     Active Substance: LINACLOTIDE
  3. ADVIL [Concomitant]
     Active Substance: IBUPROFEN
  4. DULOXETIN DELAYED RELEASE CAPSULES [Suspect]
     Active Substance: DULOXETINE
     Indication: NEURALGIA
     Route: 048
     Dates: start: 20181101, end: 20191013

REACTIONS (9)
  - Withdrawal syndrome [None]
  - Influenza like illness [None]
  - Pruritus [None]
  - Weight increased [None]
  - Muscle twitching [None]
  - Feeling abnormal [None]
  - Hot flush [None]
  - Product use complaint [None]
  - Alopecia [None]

NARRATIVE: CASE EVENT DATE: 20191017
